FAERS Safety Report 9720962 (Version 1)
Quarter: 2013Q4

REPORT INFORMATION
  Report Type: Spontaneous
  Country: DE (occurrence: DE)
  Receive Date: 20131129
  Receipt Date: 20131129
  Transmission Date: 20140711
  Serious: Yes (Death, Life-Threatening, Hospitalization)
  Sender: FDA-Public Use
  Company Number: DE-BAYER-2013-142796

PATIENT
  Age: 88 Year
  Sex: Female

DRUGS (1)
  1. ASS [Suspect]
     Indication: HYPERTENSION
     Dosage: UNK

REACTIONS (1)
  - Cerebral haemorrhage [Fatal]
